FAERS Safety Report 11785389 (Version 1)
Quarter: 2015Q4

REPORT INFORMATION
  Report Type: Spontaneous
  Country: US (occurrence: US)
  Receive Date: 20151130
  Receipt Date: 20151130
  Transmission Date: 20160305
  Serious: No
  Sender: FDA-Public Use
  Company Number: US-JNJFOC-20151014912

PATIENT
  Age: 79 Year
  Sex: Male
  Weight: 113.4 kg

DRUGS (5)
  1. ZOLOFT [Concomitant]
     Active Substance: SERTRALINE HYDROCHLORIDE
     Indication: ANXIETY
     Route: 065
  2. KEPPRA [Concomitant]
     Active Substance: LEVETIRACETAM
     Indication: ANXIETY
     Route: 065
  3. TYLENOL REGULAR STRENGTH [Suspect]
     Active Substance: ACETAMINOPHEN
     Indication: PAIN
     Dosage: EVERY 4 TO 6 HOURS
     Route: 048
  4. XANAX [Concomitant]
     Active Substance: ALPRAZOLAM
     Indication: ANXIETY
     Route: 065
  5. TYLENOL REGULAR STRENGTH [Suspect]
     Active Substance: ACETAMINOPHEN
     Indication: PAIN
     Dosage: RECOMMENDED DOSING
     Route: 048

REACTIONS (2)
  - Drug ineffective [Unknown]
  - Therapy change [Unknown]
